FAERS Safety Report 13195290 (Version 1)
Quarter: 2017Q1

REPORT INFORMATION
  Report Type: Spontaneous
  Country: US (occurrence: US)
  Receive Date: 20170207
  Receipt Date: 20170207
  Transmission Date: 20170428
  Serious: Yes (Hospitalization)
  Sender: FDA-Public Use
  Company Number: None

PATIENT
  Age: 52 Year
  Sex: Male

DRUGS (10)
  1. COSENTYX [Suspect]
     Active Substance: SECUKINUMAB
     Indication: PSORIASIS
     Dosage: 150MG/PEN 2 PENS Q 4 WEEKS SUBQ
     Route: 058
     Dates: start: 20151030
  2. PYRIDOXINE [Concomitant]
     Active Substance: PYRIDOXINE
  3. COSENTYX [Suspect]
     Active Substance: SECUKINUMAB
     Indication: RHEUMATOID ARTHRITIS
     Dosage: 150MG/PEN 2 PENS Q 4 WEEKS SUBQ
     Route: 058
     Dates: start: 20151030
  4. TOUJEO [Concomitant]
     Active Substance: INSULIN GLARGINE
  5. BUSPAR [Concomitant]
     Active Substance: BUSPIRONE HYDROCHLORIDE
  6. KLONOPIN [Concomitant]
     Active Substance: CLONAZEPAM
  7. EDARBI [Concomitant]
     Active Substance: AZILSARTAN KAMEDOXOMIL
  8. ABILIFY [Concomitant]
     Active Substance: ARIPIPRAZOLE
  9. PERCOCET [Concomitant]
     Active Substance: ACETAMINOPHEN\OXYCODONE HYDROCHLORIDE
  10. ISONIAZID. [Concomitant]
     Active Substance: ISONIAZID

REACTIONS (1)
  - Wound infection [None]

NARRATIVE: CASE EVENT DATE: 201702
